FAERS Safety Report 8950704 (Version 1)
Quarter: 2012Q4

REPORT INFORMATION
  Report Type: Spontaneous
  Country: BR (occurrence: None)
  Receive Date: 20121128
  Receipt Date: 20121128
  Transmission Date: 20130627
  Serious: Yes (Other)
  Sender: FDA-Public Use
  Company Number: VAL_01005_2012

PATIENT
  Age: 35 Year
  Sex: Female

DRUGS (2)
  1. METHERGINE [Suspect]
     Indication: HAEMORRHAGE
     Route: 048
     Dates: start: 20121106
  2. METHERGINE [Suspect]
     Indication: HAEMORRHAGE
     Dates: start: 2007

REACTIONS (1)
  - Haemorrhage [None]
